FAERS Safety Report 5885856-8 (Version None)
Quarter: 2008Q3

REPORT INFORMATION
  Report Type: 
  Country: None (occurrence: None)
  Receive Date: 20080917
  Receipt Date: 20080903
  Transmission Date: 20090109
  Serious: Yes (Other)
  Sender: FDA-Public Use
  Company Number: JP-JNJFOC-20070302441

PATIENT
  Age: 22 Year
  Sex: Female

DRUGS (8)
  1. REMICADE [Suspect]
     Dosage: 28TH INFUSION
     Route: 042
  2. REMICADE [Suspect]
     Dosage: 19 INFUSIONS
     Route: 042
  3. REMICADE [Suspect]
     Route: 042
  4. REMICADE [Suspect]
     Route: 042
  5. REMICADE [Suspect]
     Route: 042
  6. REMICADE [Suspect]
     Route: 042
  7. REMICADE [Suspect]
     Route: 042
  8. REMICADE [Suspect]
     Indication: RHEUMATOID ARTHRITIS
     Route: 042

REACTIONS (3)
  - FLUSHING [None]
  - HENOCH-SCHONLEIN PURPURA [None]
  - PYREXIA [None]
